FAERS Safety Report 7981697-6 (Version None)
Quarter: 2011Q4

REPORT INFORMATION
  Report Type: 
  Country: None (occurrence: None)
  Receive Date: 20111215
  Receipt Date: 20111209
  Transmission Date: 20120403
  Serious: Yes (Hospitalization)
  Sender: FDA-Public Use
  Company Number: ES-SANOFI-AVENTIS-2011SA081171

PATIENT
  Age: 77 Year
  Sex: Female

DRUGS (6)
  1. BOI-K ASPARTICO [Interacting]
     Route: 048
     Dates: start: 20080311, end: 20090224
  2. DIGOXIN [Interacting]
     Indication: ATRIAL FIBRILLATION
     Route: 048
     Dates: start: 20030901, end: 20090224
  3. ENALAPRIL MALEATE [Interacting]
     Indication: HYPERTENSION
     Route: 048
     Dates: start: 20081201, end: 20090224
  4. FUROSEMIDE [Suspect]
     Indication: RENAL FAILURE CHRONIC
     Route: 048
     Dates: start: 20080304, end: 20090224
  5. SPIRONOLACTONE [Interacting]
     Indication: RENAL FAILURE CHRONIC
     Route: 048
     Dates: start: 20090220, end: 20090224
  6. NEORAL [Interacting]
     Indication: LIVER TRANSPLANT
     Route: 048
     Dates: start: 19900201, end: 20090225

REACTIONS (2)
  - HYPERKALAEMIA [None]
  - RENAL FAILURE ACUTE [None]
